FAERS Safety Report 4759502-0 (Version None)
Quarter: 2005Q3

REPORT INFORMATION
  Report Type: 
  Country: None (occurrence: None)
  Receive Date: 20050826
  Receipt Date: 20050624
  Transmission Date: 20060218
  Serious: No
  Sender: FDA-Public Use
  Company Number: 215641

PATIENT
  Age: 29 Year
  Sex: Female

DRUGS (4)
  1. RAPTIVA [Suspect]
     Indication: PSORIASIS
     Dosage: 77 MG INTRAVENOUS
     Route: 042
     Dates: start: 20050619
  2. TAZORAC(TAZAROTINE) [Concomitant]
  3. CLOBETASOL(CLOBETASOL PROPIONATE) [Concomitant]
  4. DOVONEX CREAM(CALCIPROTRIENE) [Concomitant]

REACTIONS (2)
  - HEADACHE [None]
  - TREMOR [None]
